FAERS Safety Report 21579899 (Version 2)
Quarter: 2022Q4

REPORT INFORMATION
  Report Type: Report from Study
  Country: NL (occurrence: NL)
  Receive Date: 20221110
  Receipt Date: 20221111
  Transmission Date: 20230113
  Serious: Yes (Death, Life-Threatening, Hospitalization)
  Sender: FDA-Public Use
  Company Number: NL-REGENERON PHARMACEUTICALS, INC.-2022-142963

PATIENT
  Age: 33 Year
  Sex: Female

DRUGS (12)
  1. CEMIPLIMAB [Suspect]
     Active Substance: CEMIPLIMAB
     Indication: Squamous cell carcinoma of the cervix
     Dosage: 350 MG, Q3W
     Route: 042
     Dates: start: 20220928
  2. INVESTIGATIONAL PRODUCT [Suspect]
     Active Substance: INVESTIGATIONAL PRODUCT
     Indication: Squamous cell carcinoma of the cervix
     Dosage: 100 MCG/PEPTIDE ON DAY 1, DAY 29, AND DAY 50
     Route: 058
     Dates: start: 20220919
  3. DYDROGESTERONE\ESTRADIOL [Concomitant]
     Active Substance: DYDROGESTERONE\ESTRADIOL
     Indication: Menopausal symptoms
     Dosage: UNKNOWN, BID
     Route: 048
     Dates: start: 20220817
  4. LORAZEPAM [Concomitant]
     Active Substance: LORAZEPAM
     Indication: Prophylaxis
     Dosage: 1 MG, PRN
     Route: 048
     Dates: start: 20220817
  5. MORPHINE [Concomitant]
     Active Substance: MORPHINE
     Indication: Dyspnoea
     Dosage: 5 MG, PRN
     Route: 048
     Dates: start: 20220919
  6. ACETYLCYSTEINE [Concomitant]
     Active Substance: ACETYLCYSTEINE
     Indication: Dyspnoea
     Dosage: 600 MG, PRN
     Route: 048
     Dates: start: 20220919
  7. LACTULOSE [Concomitant]
     Active Substance: LACTULOSE
     Indication: Dyspnoea
     Dosage: 15 ML, PRN
     Route: 048
     Dates: start: 20220929
  8. PREGABALIN [Concomitant]
     Active Substance: PREGABALIN
     Indication: Prophylaxis
     Dosage: 75 MG, BID
     Route: 048
     Dates: start: 20221003
  9. OXYCODONE [Concomitant]
     Active Substance: OXYCODONE
     Indication: Dyspnoea
     Dosage: 5 MG, PRN
     Route: 048
     Dates: start: 20221003
  10. OXYCODONE [Concomitant]
     Active Substance: OXYCODONE
     Dosage: 5 MG, TID
     Route: 048
     Dates: start: 20221003
  11. OXYCODONE [Concomitant]
     Active Substance: OXYCODONE
     Dosage: 5 MG, TID
     Route: 048
     Dates: start: 20221003
  12. OXYGEN [Concomitant]
     Active Substance: OXYGEN
     Indication: Dyspnoea
     Dosage: 1 L, BID
     Dates: start: 20221007

REACTIONS (1)
  - Pneumonitis [Fatal]

NARRATIVE: CASE EVENT DATE: 20221104
